FAERS Safety Report 10956223 (Version 1)
Quarter: 2015Q1

REPORT INFORMATION
  Report Type: Spontaneous
  Country: US (occurrence: US)
  Receive Date: 20150326
  Receipt Date: 20150326
  Transmission Date: 20150721
  Serious: No
  Sender: FDA-Public Use
  Company Number: US-MYLANLABS-2014S1005675

PATIENT
  Age: 65 Year
  Sex: Male
  Weight: 109.77 kg

DRUGS (1)
  1. ALBUTEROL SULFATE SOLUTION FOR INHALATION [Suspect]
     Active Substance: ALBUTEROL SULFATE
     Indication: COUGH
     Dosage: .083 %,BID
     Route: 055
     Dates: start: 201212, end: 201401

REACTIONS (3)
  - Dizziness [Recovered/Resolved]
  - Presyncope [Recovered/Resolved]
  - Tremor [Recovered/Resolved]

NARRATIVE: CASE EVENT DATE: 201401
